FAERS Safety Report 16786266 (Version 1)
Quarter: 2019Q3

REPORT INFORMATION
  Report Type: Spontaneous
  Country: PL (occurrence: PL)
  Receive Date: 20190909
  Receipt Date: 20190909
  Transmission Date: 20191005
  Serious: Yes (Other)
  Sender: FDA-Public Use
  Company Number: PL-JNJFOC-20190838555

PATIENT
  Age: 66 Year
  Sex: Male

DRUGS (1)
  1. ZYTIGA [Suspect]
     Active Substance: ABIRATERONE ACETATE
     Indication: PROSTATE CANCER
     Route: 048
     Dates: start: 201710

REACTIONS (4)
  - Respiratory rate increased [Unknown]
  - Gastrointestinal disorder [Unknown]
  - Urinary retention [Unknown]
  - Prostate cancer [Unknown]

NARRATIVE: CASE EVENT DATE: 2017
